FAERS Safety Report 8746186 (Version 3)
Quarter: 2013Q1

REPORT INFORMATION
  Report Type: Spontaneous
  Country: BR (occurrence: BR)
  Receive Date: 20120827
  Receipt Date: 20130321
  Transmission Date: 20140127
  Serious: Yes (Other)
  Sender: FDA-Public Use
  Company Number: PHHY2012BR073110

PATIENT
  Sex: Male
  Weight: 56 kg

DRUGS (7)
  1. EXELON [Suspect]
     Indication: DEMENTIA ALZHEIMER^S TYPE
     Dosage: 3 MG, DAILY (2X1,5 MG, DAILY)
     Route: 048
  2. EXELON [Suspect]
     Dosage: 3 MG, DAILY (1X3 MG, DAILY)
     Route: 048
  3. EXELON [Suspect]
     Dosage: 3 MG, BID (2X3 MG, DAILY)
     Route: 048
  4. REMERON [Concomitant]
     Indication: DEPRESSION
     Dosage: 1 DF, QD
     Route: 048
  5. ANCORON [Concomitant]
     Indication: CARDIAC DISORDER
     Dosage: 1 DF, QD
     Route: 048
  6. PRADAXA [Concomitant]
     Indication: CARDIAC DISORDER
     Dosage: 1 DF, QD
     Route: 048
  7. AMPLICTIL [Concomitant]
     Indication: INSOMNIA
     Dosage: 10 DRP, UNK
     Route: 048

REACTIONS (2)
  - Cerebrovascular accident [Recovered/Resolved]
  - Hypokinesia [Recovered/Resolved]
